FAERS Safety Report 6261761-2 (Version None)
Quarter: 2009Q3

REPORT INFORMATION
  Report Type: 
  Country: None (occurrence: None)
  Receive Date: 20090709
  Receipt Date: 20090626
  Transmission Date: 20100115
  Serious: Yes (Hospitalization)
  Sender: FDA-Public Use
  Company Number: US-TYCO HEALTHCARE/MALLINCKRODT-T200901305

PATIENT
  Age: 53 Year
  Sex: Female

DRUGS (6)
  1. HYDROMORPHONE HCL [Suspect]
     Indication: PAIN
     Route: 048
  2. PREDNISONE [Suspect]
  3. ESOMEPRAZOLE MAGNESIUM [Suspect]
  4. ALPRAZOLAM [Suspect]
  5. WARFARIN SODIUM [Suspect]
  6. ESCITALOPRAM [Suspect]

REACTIONS (1)
  - SILICON GRANULOMA [None]
